FAERS Safety Report 6180962-5 (Version None)
Quarter: 2009Q2

REPORT INFORMATION
  Report Type: 
  Country: None (occurrence: None)
  Receive Date: 20090506
  Receipt Date: 20090427
  Transmission Date: 20091009
  Serious: Yes (Death)
  Sender: FDA-Public Use
  Company Number: NO-PFIZER INC-2009204698

PATIENT

DRUGS (1)
  1. PREDNISOLONE AND PREDNISOLONE STEAGLATE [Suspect]
     Indication: PYODERMA GANGRENOSUM
     Dosage: 40 MG, DAILY

REACTIONS (5)
  - AORTIC ANEURYSM RUPTURE [None]
  - BLOOD CHOLESTEROL INCREASED [None]
  - BLOOD GLUCOSE INCREASED [None]
  - BLOOD PRESSURE INCREASED [None]
  - HYPOTENSION [None]
